FAERS Safety Report 23696818 (Version 1)
Quarter: 2024Q2

REPORT INFORMATION
  Report Type: Spontaneous
  Country: GB (occurrence: GB)
  Receive Date: 20240402
  Receipt Date: 20240402
  Transmission Date: 20240716
  Serious: Yes (Hospitalization)
  Sender: FDA-Public Use
  Company Number: None

PATIENT
  Age: 49 Year
  Sex: Female
  Weight: 65 kg

DRUGS (6)
  1. TRANEXAMIC ACID [Suspect]
     Active Substance: TRANEXAMIC ACID
     Indication: Ill-defined disorder
     Dosage: UNK
     Dates: start: 20240327
  2. CHLORPHENIRAMINE MALEATE [Concomitant]
     Active Substance: CHLORPHENIRAMINE MALEATE
     Indication: Ill-defined disorder
     Dosage: TAKE ONE EVERY 4-6 HRS
     Dates: start: 20240128, end: 20240201
  3. FERROUS SULFATE [Concomitant]
     Active Substance: FERROUS SULFATE
     Indication: Ill-defined disorder
     Dosage: 1 DF, 2X/DAY
     Dates: start: 20240131, end: 20240228
  4. MEDROXYPROGESTERONE ACETATE [Concomitant]
     Active Substance: MEDROXYPROGESTERONE ACETATE
     Indication: Ill-defined disorder
     Dosage: 1 DF, 2X/DAY (FOR 3 WEEKS)
     Dates: start: 20240213, end: 20240314
  5. SERTRALINE [Concomitant]
     Active Substance: SERTRALINE HYDROCHLORIDE
     Indication: Ill-defined disorder
     Dosage: UNK UNK, 1X/DAY
     Dates: start: 20240103, end: 20240131
  6. TRANEXAMIC ACID [Concomitant]
     Active Substance: TRANEXAMIC ACID
     Indication: Ill-defined disorder
     Dosage: 1 G, 3X/DAY
     Dates: start: 20240122, end: 20240126

REACTIONS (2)
  - Rash [Unknown]
  - Periorbital swelling [Unknown]

NARRATIVE: CASE EVENT DATE: 20240327
